FAERS Safety Report 6241475-5 (Version None)
Quarter: 2009Q2

REPORT INFORMATION
  Report Type: 
  Country: None (occurrence: None)
  Receive Date: 20090623
  Receipt Date: 20030827
  Transmission Date: 20091009
  Serious: Yes (Hospitalization)
  Sender: FDA-Public Use
  Company Number: DE-ROCHE-345836

PATIENT
  Sex: Male
  Weight: 72 kg

DRUGS (22)
  1. DACLIZUMAB [Suspect]
     Route: 042
     Dates: start: 20030804, end: 20030804
  2. DACLIZUMAB [Suspect]
     Route: 042
     Dates: start: 20030818
  3. MYCOPHENOLATE MOFETIL [Suspect]
     Dosage: DRUG: MYCOPHENOLAT MOFETIL
     Route: 048
     Dates: start: 20030804, end: 20030824
  4. MYCOPHENOLATE MOFETIL [Suspect]
     Route: 048
     Dates: start: 20030825, end: 20030826
  5. SIROLIMUS [Suspect]
     Route: 048
     Dates: start: 20030804, end: 20030910
  6. PREDNISOLONE [Suspect]
     Route: 042
     Dates: start: 20030804, end: 20030823
  7. PREDNISONE [Suspect]
     Route: 048
     Dates: start: 20030806, end: 20030819
  8. PREDNISONE [Suspect]
     Route: 048
     Dates: start: 20030823
  9. LISINOPRIL [Concomitant]
     Route: 048
     Dates: start: 20030808
  10. FELODIPINE [Concomitant]
     Route: 048
     Dates: start: 20030810
  11. FUROSEMID [Concomitant]
     Route: 048
     Dates: start: 20030809
  12. TACROLIMUS [Suspect]
     Route: 048
     Dates: start: 20030910
  13. TACROLIMUS [Suspect]
     Route: 048
     Dates: start: 20030911
  14. BISOPROLOL [Concomitant]
     Route: 048
     Dates: start: 20030811
  15. CEFUROXIME [Concomitant]
     Route: 042
     Dates: start: 20030804, end: 20030806
  16. CIPROFLOXACIN [Concomitant]
     Route: 048
     Dates: start: 20030810, end: 20030812
  17. CIPROFLOXACIN [Concomitant]
     Route: 048
     Dates: start: 20030827, end: 20030913
  18. COTRIM [Concomitant]
     Route: 048
     Dates: start: 20030812, end: 20030827
  19. MOXONIDINE [Concomitant]
     Dosage: DRUG: MOXONIDIN
     Route: 048
     Dates: start: 20030823
  20. LEVOFLOXACIN [Concomitant]
     Route: 048
     Dates: start: 20030824, end: 20030828
  21. PANTOPRAZOL [Concomitant]
     Dosage: DRUG: PANTOPAZOL
     Route: 042
     Dates: start: 20030804, end: 20030805
  22. PANTOPRAZOL [Concomitant]
     Dosage: DRUG: PANTOPAZOL
     Route: 048
     Dates: start: 20030806

REACTIONS (1)
  - URINARY TRACT INFECTION [None]
